FAERS Safety Report 10257858 (Version 1)
Quarter: 2014Q2

REPORT INFORMATION
  Report Type: Spontaneous
  Country: US (occurrence: None)
  Receive Date: 20140623
  Receipt Date: 20140623
  Transmission Date: 20141212
  Serious: Yes (Hospitalization)
  Sender: FDA-Public Use
  Company Number: None

PATIENT
  Age: 57 Year
  Sex: Male
  Weight: 86.1 kg

DRUGS (2)
  1. DILTIAZEM [Suspect]
     Dosage: MG   PO
     Route: 048
     Dates: start: 20140129
  2. TRIFLUOPERAZINE [Suspect]
     Dosage: MG    PO
     Route: 048
     Dates: start: 20140129

REACTIONS (3)
  - Vomiting [None]
  - Intentional overdose [None]
  - Self-injurious ideation [None]
